FAERS Safety Report 5597824-4 (Version None)
Quarter: 2007Q4

REPORT INFORMATION
  Report Type: 
  Country: None (occurrence: None)
  Receive Date: 20071221
  Receipt Date: 20070319
  Transmission Date: 20080405
  Serious: Yes (Hospitalization)
  Sender: FDA-Public Use
  Company Number: US-2007-007219

PATIENT
  Sex: Male

DRUGS (3)
  1. BETAPACE [Suspect]
     Indication: ATRIAL FIBRILLATION
     Dosage: 60 MG, 1X/DAY, ORAL ; 80 MG, 1X/DAY, ORAL ; 100 MG, 1X/DAY, ORAL
     Route: 048
     Dates: end: 20060101
  2. BETAPACE [Suspect]
     Indication: ATRIAL FIBRILLATION
     Dosage: 60 MG, 1X/DAY, ORAL ; 80 MG, 1X/DAY, ORAL ; 100 MG, 1X/DAY, ORAL
     Route: 048
     Dates: start: 20000101
  3. BETAPACE [Suspect]
     Indication: ATRIAL FIBRILLATION
     Dosage: 60 MG, 1X/DAY, ORAL ; 80 MG, 1X/DAY, ORAL ; 100 MG, 1X/DAY, ORAL
     Route: 048
     Dates: start: 20060101

REACTIONS (1)
  - ATRIAL FIBRILLATION [None]
